FAERS Safety Report 10550286 (Version 1)
Quarter: 2014Q4

REPORT INFORMATION
  Report Type: Spontaneous
  Country: MY (occurrence: MY)
  Receive Date: 20141029
  Receipt Date: 20141029
  Transmission Date: 20150529
  Serious: Yes (Other)
  Sender: FDA-Public Use
  Company Number: MY-RANBAXY-2014R3-86828

PATIENT
  Age: 59 Year
  Sex: Male

DRUGS (1)
  1. HISTACOL [Suspect]
     Active Substance: BROMPHENIRAMINE\DEXTROMETHORPHAN\GUAIFENESIN\PSEUDOEPHEDRINE
     Indication: GASTRITIS
     Dosage: 300 MG, DAILY
     Route: 048

REACTIONS (2)
  - Productive cough [Recovered/Resolved]
  - Orbital oedema [Recovered/Resolved]

NARRATIVE: CASE EVENT DATE: 20130228
